FAERS Safety Report 6294849-0 (Version None)
Quarter: 2009Q3

REPORT INFORMATION
  Report Type: 
  Country: None (occurrence: None)
  Receive Date: 20090803
  Receipt Date: 20090721
  Transmission Date: 20100115
  Serious: Yes (Hospitalization)
  Sender: FDA-Public Use
  Company Number: PHHY2009FR30864

PATIENT
  Sex: Female

DRUGS (3)
  1. VOLTAREN [Suspect]
     Indication: ARTHRALGIA
     Dosage: 50 MG, TID
     Route: 048
     Dates: start: 20090528, end: 20090606
  2. CALCIPARINE [Suspect]
  3. LOVENOX [Suspect]

REACTIONS (11)
  - ABDOMINAL PAIN [None]
  - COLON POLYPECTOMY [None]
  - COLONIC POLYP [None]
  - DIARRHOEA [None]
  - DIVERTICULUM INTESTINAL [None]
  - FALL [None]
  - HAEMOGLOBIN DECREASED [None]
  - MALAISE [None]
  - MELAENA [None]
  - RASH [None]
  - VOMITING [None]
